FAERS Safety Report 5928701-4 (Version None)
Quarter: 2008Q3

REPORT INFORMATION
  Report Type: 
  Country: None (occurrence: None)
  Receive Date: 20080923
  Receipt Date: 20080403
  Transmission Date: 20090109
  Serious: Yes (Disabling)
  Sender: FDA-Public Use
  Company Number: WAES 0806USA02916

PATIENT

DRUGS (1)
  1. VYTORIN [Suspect]
     Dosage: PO
     Route: 048

REACTIONS (1)
  - ARTHRALGIA [None]
